FAERS Safety Report 23766956 (Version 1)
Quarter: 2024Q2

REPORT INFORMATION
  Report Type: Spontaneous
  Country: US (occurrence: US)
  Receive Date: 20240422
  Receipt Date: 20240422
  Transmission Date: 20240716
  Serious: No
  Sender: FDA-Public Use
  Company Number: US-JNJFOC-20240420799

PATIENT
  Age: 4 Decade
  Sex: Male

DRUGS (1)
  1. MENS ROGAINE EXTRA STRENGTH [Suspect]
     Active Substance: MINOXIDIL
     Indication: Alopecia
     Dosage: USED MORE THAN THE RECOMMENDED
     Route: 061
     Dates: start: 2020

REACTIONS (3)
  - Alopecia [Recovering/Resolving]
  - Product formulation issue [Unknown]
  - Overdose [Unknown]

NARRATIVE: CASE EVENT DATE: 20200101
